FAERS Safety Report 5802937-5 (Version None)
Quarter: 2008Q3

REPORT INFORMATION
  Report Type: 
  Country: None (occurrence: None)
  Receive Date: 20080703
  Receipt Date: 20080619
  Transmission Date: 20090109
  Serious: Yes (Other)
  Sender: FDA-Public Use
  Company Number: 2008S1011275

PATIENT
  Age: 87 Year
  Sex: Male

DRUGS (7)
  1. WARFARIN SODIUM [Suspect]
  2. FELODIPINE [Concomitant]
  3. LISINOPRIL [Concomitant]
  4. HYDROCHLOROTHIAZIDE [Concomitant]
  5. DILTIAZEM [Concomitant]
  6. POTASSIUM (POTASSIUM) [Concomitant]
  7. OXYCODONE HCL [Concomitant]

REACTIONS (3)
  - DRUG INTERACTION [None]
  - HAEMATURIA [None]
  - INTERNATIONAL NORMALISED RATIO INCREASED [None]
